FAERS Safety Report 19725897 (Version 1)
Quarter: 2021Q3

REPORT INFORMATION
  Report Type: Spontaneous
  Country: US (occurrence: US)
  Receive Date: 20210819
  Receipt Date: 20210819
  Transmission Date: 20211014
  Serious: No
  Sender: FDA-Public Use
  Company Number: US-MANNKIND CORPORATION-2020MK000127

PATIENT
  Age: 55 Year
  Sex: Male
  Weight: 77.18 kg

DRUGS (3)
  1. TRESIBA [Suspect]
     Active Substance: INSULIN DEGLUDEC
     Indication: TYPE 1 DIABETES MELLITUS
     Dates: start: 202010
  2. TRESIBA [Suspect]
     Active Substance: INSULIN DEGLUDEC
     Dates: start: 202007, end: 202010
  3. AFREZZA [Suspect]
     Active Substance: INSULIN HUMAN
     Indication: TYPE 1 DIABETES MELLITUS
     Dates: start: 202009

REACTIONS (4)
  - Weight decreased [Unknown]
  - Wrong technique in product usage process [Unknown]
  - Off label use [Unknown]
  - Blood glucose fluctuation [Unknown]

NARRATIVE: CASE EVENT DATE: 20201028
